FAERS Safety Report 16617349 (Version 4)
Quarter: 2019Q3

REPORT INFORMATION
  Report Type: Spontaneous
  Country: BR (occurrence: BR)
  Receive Date: 20190723
  Receipt Date: 20190809
  Transmission Date: 20191004
  Serious: Yes (Death, Hospitalization, Other)
  Sender: FDA-Public Use
  Company Number: BR-JAZZ-2019-BR-009918

PATIENT
  Age: 40 Year
  Sex: Female

DRUGS (1)
  1. DEFIBROTIDE [Suspect]
     Active Substance: DEFIBROTIDE (BOVINE)
     Indication: VENOOCCLUSIVE LIVER DISEASE
     Dosage: 618.75 MG EVERY 6 HOURS
     Route: 042
     Dates: start: 20190712

REACTIONS (5)
  - Fungal infection [Fatal]
  - Pyrexia [Not Recovered/Not Resolved]
  - Pulmonary congestion [Not Recovered/Not Resolved]
  - Atrial fibrillation [Recovered/Resolved]
  - Renal failure [Not Recovered/Not Resolved]

NARRATIVE: CASE EVENT DATE: 20190715
